FAERS Safety Report 7792130-1 (Version None)
Quarter: 2011Q4

REPORT INFORMATION
  Report Type: 
  Country: None (occurrence: None)
  Receive Date: 20111003
  Receipt Date: 20110926
  Transmission Date: 20120403
  Serious: Yes (Hospitalization, Other)
  Sender: FDA-Public Use
  Company Number: US-ROCHE-728108

PATIENT
  Sex: Female
  Weight: 75.3 kg

DRUGS (6)
  1. PROZAC [Concomitant]
     Indication: DEPRESSION
  2. ORTHO TRI-CYCLEN [Concomitant]
     Indication: CONTRACEPTION
  3. ACCUTANE [Suspect]
     Route: 048
  4. ADDERALL 5 [Concomitant]
  5. ACCUTANE [Suspect]
     Indication: ACNE
     Route: 048
  6. WELLBUTRIN [Concomitant]
     Indication: DEPRESSION

REACTIONS (11)
  - INTESTINAL HAEMORRHAGE [None]
  - DEPRESSION [None]
  - CROHN'S DISEASE [None]
  - INTESTINAL OBSTRUCTION [None]
  - INFLAMMATORY BOWEL DISEASE [None]
  - SINUSITIS [None]
  - MASS [None]
  - IRRITABLE BOWEL SYNDROME [None]
  - HEAD INJURY [None]
  - DRY SKIN [None]
  - OSTEOPENIA [None]
